FAERS Safety Report 10769676 (Version 1)
Quarter: 2015Q1

REPORT INFORMATION
  Report Type: Spontaneous
  Country: FR (occurrence: FR)
  Receive Date: 20150206
  Receipt Date: 20150206
  Transmission Date: 20150721
  Serious: Yes (Death, Hospitalization)
  Sender: FDA-Public Use
  Company Number: FR-SA-2015SA012106

PATIENT
  Age: 58 Year
  Sex: Male

DRUGS (15)
  1. AXELER [Suspect]
     Active Substance: AMLODIPINE BESYLATE\OLMESARTAN MEDOXOMIL
     Dosage: STRENGTH- 40/10MG
     Route: 065
  2. HUMALOG [Concomitant]
     Active Substance: INSULIN LISPRO
  3. DOLIPRANE [Concomitant]
     Active Substance: ACETAMINOPHEN
  4. GLICLAZIDE [Concomitant]
     Active Substance: GLICLAZIDE
  5. PRAVASTATIN SODIUM. [Suspect]
     Active Substance: PRAVASTATIN SODIUM
     Route: 065
  6. COLCHIMAX [Suspect]
     Active Substance: COLCHICINE\DICYCLOMINE HYDROCHLORIDE
     Indication: ILL-DEFINED DISORDER
     Route: 065
     Dates: start: 20140915
  7. LEVEMIR [Concomitant]
     Active Substance: INSULIN DETEMIR
  8. ALLOPURINOL. [Concomitant]
     Active Substance: ALLOPURINOL
  9. BACTRIM [Suspect]
     Active Substance: SULFAMETHOXAZOLE\TRIMETHOPRIM
     Route: 048
     Dates: start: 20140915, end: 20141005
  10. RENITEC [Suspect]
     Active Substance: ENALAPRIL MALEATE
     Route: 065
  11. DIAMICRON [Concomitant]
     Active Substance: GLICLAZIDE
  12. COLCHIMAX [Suspect]
     Active Substance: COLCHICINE\DICYCLOMINE HYDROCHLORIDE
     Indication: ILL-DEFINED DISORDER
     Dosage: DOSE-INCREASED DOSE
     Route: 065
     Dates: start: 20140922, end: 201410
  13. KARDEGIC [Concomitant]
     Active Substance: ASPIRIN LYSINE
  14. LASILIX [Suspect]
     Active Substance: FUROSEMIDE
     Dosage: STRENGTH-40 MG
     Route: 048
  15. XATRAL [Concomitant]
     Active Substance: ALFUZOSIN

REACTIONS (4)
  - Hyperkalaemia [Fatal]
  - Acute kidney injury [Fatal]
  - Hepatocellular injury [Unknown]
  - General physical health deterioration [Unknown]

NARRATIVE: CASE EVENT DATE: 201409
